FAERS Safety Report 13196236 (Version 3)
Quarter: 2017Q1

REPORT INFORMATION
  Report Type: Spontaneous
  Country: US (occurrence: US)
  Receive Date: 20170208
  Receipt Date: 20170327
  Transmission Date: 20170428
  Serious: Yes (Hospitalization)
  Sender: FDA-Public Use
  Company Number: US-PFIZER INC-2017044597

PATIENT
  Age: 58 Year
  Sex: Female

DRUGS (2)
  1. PREMARIN [Suspect]
     Active Substance: ESTROGENS, CONJUGATED
     Indication: DYSPAREUNIA
  2. PREMARIN [Suspect]
     Active Substance: ESTROGENS, CONJUGATED
     Indication: ATROPHIC VULVOVAGINITIS
     Dosage: 0.5 MG, 2X/WEEK
     Route: 067
     Dates: start: 20170127, end: 20170129

REACTIONS (5)
  - Back pain [Recovered/Resolved]
  - Abdominal distension [Not Recovered/Not Resolved]
  - Bladder pain [Not Recovered/Not Resolved]
  - Malaise [Unknown]
  - Dysuria [Recovered/Resolved]

NARRATIVE: CASE EVENT DATE: 20170128
